FAERS Safety Report 16610356 (Version 1)
Quarter: 2019Q3

REPORT INFORMATION
  Report Type: Spontaneous
  Country: NL (occurrence: NL)
  Receive Date: 20190722
  Receipt Date: 20190722
  Transmission Date: 20191004
  Serious: Yes (Life-Threatening, Other)
  Sender: FDA-Public Use
  Company Number: NL-VIIV HEALTHCARE LIMITED-NL2019131840

PATIENT
  Sex: Male
  Weight: 87 kg

DRUGS (4)
  1. REZOLSTA [Suspect]
     Active Substance: COBICISTAT\DARUNAVIR ETHANOLATE
     Indication: HIV INFECTION
     Dosage: 1X DAILY BOTH MEDICINES, AND SO INVITES BUDESONIDE, WHETHER OR NOT IN SYMBICORT.
     Route: 050
     Dates: start: 20190201
  2. SYMBICORT [Concomitant]
     Active Substance: BUDESONIDE\FORMOTEROL FUMARATE DIHYDRATE
     Indication: PRODUCT USED FOR UNKNOWN INDICATION
     Dosage: UNK
     Route: 055
  3. PULMICORT TURBUHALER [Suspect]
     Active Substance: BUDESONIDE
     Indication: CHRONIC OBSTRUCTIVE PULMONARY DISEASE
     Dosage: AND SO INVITES BUDESONIDE, WHETHER OR NOT IN SYMBICORT
     Route: 050
     Dates: start: 20190201
  4. TIVICAY [Suspect]
     Active Substance: DOLUTEGRAVIR SODIUM
     Indication: HIV INFECTION
     Dosage: 1X MEDICATION BOTH TIMES A DAY
     Route: 050
     Dates: start: 20190201

REACTIONS (2)
  - Nervous system disorder [Recovered/Resolved]
  - Haematospermia [Recovered/Resolved]

NARRATIVE: CASE EVENT DATE: 201902
